FAERS Safety Report 6156992-6 (Version None)
Quarter: 2009Q2

REPORT INFORMATION
  Report Type: 
  Country: None (occurrence: None)
  Receive Date: 20090413
  Receipt Date: 20090413
  Transmission Date: 20091009
  Serious: Yes (Hospitalization, Other)
  Sender: FDA-Public Use
  Company Number: None

PATIENT
  Age: 28 Year
  Sex: Female
  Weight: 83.9154 kg

DRUGS (1)
  1. OCELLA TABLETS 28S DARR [Suspect]
     Indication: CONTRACEPTION
     Dosage: 1 PILL 1/DAY PO
     Route: 048
     Dates: start: 20081026, end: 20090403

REACTIONS (2)
  - DEEP VEIN THROMBOSIS [None]
  - FATIGUE [None]
